FAERS Safety Report 7753799-0 (Version None)
Quarter: 2011Q3

REPORT INFORMATION
  Report Type: 
  Country: None (occurrence: None)
  Receive Date: 20110913
  Receipt Date: 20110831
  Transmission Date: 20111222
  Serious: Yes (Other)
  Sender: FDA-Public Use
  Company Number: FK201101831

PATIENT
  Age: 61 Year
  Sex: Female

DRUGS (2)
  1. VANCOMYCIN HYCHLORIDE [Suspect]
     Indication: PNEUMONIA
  2. ZOSYN [Suspect]
     Indication: PNEUMONIA

REACTIONS (6)
  - ARTERITIS [None]
  - JOINT EFFUSION [None]
  - PURPURA [None]
  - ANTIBIOTIC LEVEL ABOVE THERAPEUTIC [None]
  - RENAL FAILURE ACUTE [None]
  - LEUKOCYTOCLASTIC VASCULITIS [None]
